FAERS Safety Report 17523297 (Version 1)
Quarter: 2020Q1

REPORT INFORMATION
  Report Type: Spontaneous
  Country: US (occurrence: US)
  Receive Date: 20200310
  Receipt Date: 20200310
  Transmission Date: 20200409
  Serious: No
  Sender: FDA-Public Use
  Company Number: US-GALDERMA-US19058182

PATIENT
  Age: 26 Year
  Sex: Female

DRUGS (5)
  1. PROACTIV MD ADAPALENE ACNE TREATMENT [Suspect]
     Active Substance: ADAPALENE
     Indication: ACNE
     Dosage: 0.1%
     Route: 061
  2. GREEN TEA MOISTURIZER [Concomitant]
     Indication: ACNE
     Route: 061
  3. UNSPECIFIED TONER [Concomitant]
     Indication: ACNE
     Route: 061
  4. EYE BRIGHTENING SERUM [Concomitant]
     Indication: ACNE
     Route: 061
  5. UNSPECIFIED SCRUB [Concomitant]
     Indication: ACNE
     Route: 061

REACTIONS (1)
  - Drug ineffective [Unknown]
